FAERS Safety Report 19770968 (Version 41)
Quarter: 2023Q4

REPORT INFORMATION
  Report Type: Report from Study
  Country: ES (occurrence: None)
  Receive Date: 20210901
  Receipt Date: 20231002
  Transmission Date: 20240110
  Serious: Yes (Life-Threatening, Hospitalization)
  Sender: FDA-Public Use
  Company Number: ES-EISAI MEDICAL RESEARCH-EC-2021-098687

PATIENT
  Age: 82 Year
  Sex: Male
  Weight: 82.5 kg

DRUGS (8)
  1. LENVATINIB [Suspect]
     Active Substance: LENVATINIB
     Indication: Renal cell carcinoma
     Route: 048
     Dates: start: 20210813, end: 20210824
  2. BELZUTIFAN [Suspect]
     Active Substance: BELZUTIFAN
     Indication: Renal cell carcinoma
     Route: 048
     Dates: start: 20210813, end: 20210824
  3. ACETAMINOPHEN [Concomitant]
     Active Substance: ACETAMINOPHEN
     Dates: start: 201707
  4. LEVOTHYROXINE SODIUM [Concomitant]
     Active Substance: LEVOTHYROXINE SODIUM
     Dates: start: 202001
  5. LEVOTHYROXINE SODIUM [Concomitant]
     Active Substance: LEVOTHYROXINE SODIUM
     Dates: start: 20210813
  6. ENALAPRIL [Concomitant]
     Active Substance: ENALAPRIL
     Dates: start: 20210814, end: 20211213
  7. DIPYRONE [Concomitant]
     Active Substance: DIPYRONE
     Dates: start: 201708
  8. TOZINAMERAN [Concomitant]
     Active Substance: TOZINAMERAN
     Route: 030
     Dates: start: 202101, end: 20211005

REACTIONS (3)
  - Blood lactate dehydrogenase increased [Recovered/Resolved]
  - Hypertransaminasaemia [Recovered/Resolved]
  - Pneumonitis [Recovered/Resolved]

NARRATIVE: CASE EVENT DATE: 20210819
